FAERS Safety Report 6383103-4 (Version None)
Quarter: 2009Q3

REPORT INFORMATION
  Report Type: 
  Country: None (occurrence: None)
  Receive Date: 20090928
  Receipt Date: 20090914
  Transmission Date: 20100115
  Serious: Yes (Hospitalization)
  Sender: FDA-Public Use
  Company Number: 8052395

PATIENT
  Age: 35 Year
  Sex: Female
  Weight: 42.6 kg

DRUGS (11)
  1. CIMZIA [Suspect]
     Indication: CROHN'S DISEASE
     Dosage: 400 MG 1/2W SC
     Route: 058
     Dates: start: 20090812
  2. METHOTREXATE [Concomitant]
  3. PENTASA [Concomitant]
  4. FOLIC ACID [Concomitant]
  5. ASCORBIC ACID [Concomitant]
  6. CALCIUM CARBONATE W/VITAMIN D [Concomitant]
  7. VITAMIN B-12 [Concomitant]
  8. EPIPEN [Concomitant]
  9. LOVAZA [Concomitant]
  10. TOPAMAX [Concomitant]
  11. ELETRIPTAN [Concomitant]

REACTIONS (7)
  - CLOSTRIDIUM DIFFICILE COLITIS [None]
  - COLD SWEAT [None]
  - DECREASED APPETITE [None]
  - HEART RATE DECREASED [None]
  - HYPOACUSIS [None]
  - PALLOR [None]
  - PRESYNCOPE [None]
